FAERS Safety Report 8134131-X (Version None)
Quarter: 2012Q1

REPORT INFORMATION
  Report Type: 
  Country: None (occurrence: None)
  Receive Date: 20120207
  Receipt Date: 20120123
  Transmission Date: 20120608
  Serious: Yes (Death, Other)
  Sender: FDA-Public Use
  Company Number: CN-JNJFOC-20120103373

PATIENT
  Age: 44 Year
  Sex: Female

DRUGS (1)
  1. DACOGEN [Suspect]
     Indication: ACUTE MYELOID LEUKAEMIA
     Dosage: 120 MG/M2, 1 IN 1 DAY, INTRAVENOUS
     Route: 042

REACTIONS (3)
  - NEOPLASM PROGRESSION [None]
  - HAEMATOTOXICITY [None]
  - ACUTE MYELOID LEUKAEMIA [None]
